FAERS Safety Report 5556579-X (Version None)
Quarter: 2007Q4

REPORT INFORMATION
  Report Type: 
  Country: None (occurrence: None)
  Receive Date: 20071213
  Receipt Date: 20070907
  Transmission Date: 20080405
  Serious: No
  Sender: FDA-Public Use
  Company Number: US-AMGEN-KDL242413

PATIENT
  Sex: Female

DRUGS (2)
  1. ENBREL [Suspect]
     Indication: PSORIASIS
     Route: 058
     Dates: start: 20070829
  2. SORIATANE [Concomitant]
     Route: 048
     Dates: start: 20070808

REACTIONS (4)
  - BACK DISORDER [None]
  - DYSKINESIA [None]
  - TREMOR [None]
  - VISION BLURRED [None]
